FAERS Safety Report 9558477 (Version 1)
Quarter: 2013Q3

REPORT INFORMATION
  Report Type: Spontaneous
  Country: US (occurrence: US)
  Receive Date: 20130926
  Receipt Date: 20130926
  Transmission Date: 20140515
  Serious: No
  Sender: FDA-Public Use
  Company Number: US-BIOGENIDEC-2013BI043948

PATIENT
  Age: 33 Year
  Sex: Female

DRUGS (1)
  1. TECFIDERA [Suspect]
     Indication: PRODUCT USED FOR UNKNOWN INDICATION
     Route: 048
     Dates: start: 20130506

REACTIONS (11)
  - Abdominal pain [Unknown]
  - Diarrhoea [Unknown]
  - Hyperhidrosis [Unknown]
  - Muscle spasms [Unknown]
  - Coordination abnormal [Unknown]
  - Tremor [Unknown]
  - Visual impairment [Unknown]
  - Vision blurred [Unknown]
  - Abasia [Unknown]
  - Activities of daily living impaired [Unknown]
  - Adverse event [Unknown]
